FAERS Safety Report 20638588 (Version 1)
Quarter: 2022Q1

REPORT INFORMATION
  Report Type: Spontaneous
  Country: CA (occurrence: CA)
  Receive Date: 20220325
  Receipt Date: 20220325
  Transmission Date: 20220423
  Serious: Yes (Hospitalization, Other)
  Sender: FDA-Public Use
  Company Number: CA-TARO-2022TAR00434

PATIENT
  Age: 39 Year
  Sex: Female
  Weight: 115 kg

DRUGS (9)
  1. CARBAMAZEPINE [Interacting]
     Active Substance: CARBAMAZEPINE
     Indication: Epilepsy
     Dosage: 600 MG, BID
     Route: 048
  2. CARBAMAZEPINE [Interacting]
     Active Substance: CARBAMAZEPINE
     Dosage: 1200 MG, DAILY
     Route: 065
  3. APIXABAN [Interacting]
     Active Substance: APIXABAN
     Indication: Product used for unknown indication
     Dosage: 10 MG, BID
     Route: 065
     Dates: start: 20210512
  4. APIXABAN [Interacting]
     Active Substance: APIXABAN
     Dosage: UNK, HELD ONE APIXABAN DOSE
     Route: 065
  5. APIXABAN [Interacting]
     Active Substance: APIXABAN
     Dosage: 5 MG, BID
     Route: 065
     Dates: start: 20210518
  6. APIXABAN [Interacting]
     Active Substance: APIXABAN
     Dosage: 6.25 MG, BID
     Route: 065
     Dates: start: 20210527
  7. APIXABAN [Interacting]
     Active Substance: APIXABAN
     Dosage: 6.25 MG, BID
     Route: 065
     Dates: start: 20210611
  8. APIXABAN [Interacting]
     Active Substance: APIXABAN
     Dosage: UNK,HELD FOR 3 DAYS PRIOR TO HER PROCEDURE
     Route: 065
  9. APIXABAN [Interacting]
     Active Substance: APIXABAN
     Dosage: 7.5 MG, BID
     Route: 065
     Dates: start: 20210824

REACTIONS (2)
  - Tachycardia [Unknown]
  - Drug interaction [Not Recovered/Not Resolved]
